FAERS Safety Report 18010828 (Version 2)
Quarter: 2020Q3

REPORT INFORMATION
  Report Type: Spontaneous
  Country: IL (occurrence: IL)
  Receive Date: 20200710
  Receipt Date: 20200714
  Transmission Date: 20201103
  Serious: Yes (Other)
  Sender: FDA-Public Use
  Company Number: IL-TAKEDA-2020TEU006264

PATIENT
  Age: 62 Year
  Sex: Male

DRUGS (2)
  1. ACTOS [Suspect]
     Active Substance: PIOGLITAZONE HYDROCHLORIDE
     Indication: DIABETES MELLITUS
     Dosage: 15 MILLIGRAM
     Route: 065
  2. ACTOS [Suspect]
     Active Substance: PIOGLITAZONE HYDROCHLORIDE
     Dosage: 30 MILLIGRAM
     Route: 065

REACTIONS (6)
  - Pulmonary congestion [Recovering/Resolving]
  - Oedema peripheral [Recovering/Resolving]
  - Myocardial infarction [Recovering/Resolving]
  - Pulmonary oedema [Recovering/Resolving]
  - Cough [Recovering/Resolving]
  - Dyspnoea [Recovering/Resolving]
